FAERS Safety Report 17117350 (Version 1)
Quarter: 2019Q4

REPORT INFORMATION
  Report Type: Spontaneous
  Country: JP (occurrence: JP)
  Receive Date: 20191205
  Receipt Date: 20191205
  Transmission Date: 20200122
  Serious: Yes (Hospitalization, Other)
  Sender: FDA-Public Use
  Company Number: JP-GUERBET-JP-20190055

PATIENT
  Sex: Female
  Weight: 53 kg

DRUGS (1)
  1. LIPIODOL [Suspect]
     Active Substance: ETHIODIZED OIL
     Indication: HYSTEROSALPINGOGRAM
     Route: 065
     Dates: start: 20160802, end: 20160802

REACTIONS (4)
  - Premature labour [Recovered/Resolved]
  - Maternal exposure before pregnancy [Unknown]
  - Polyhydramnios [Recovering/Resolving]
  - Urine iodine increased [Unknown]
